FAERS Safety Report 15472917 (Version 14)
Quarter: 2020Q1

REPORT INFORMATION
  Report Type: Spontaneous
  Country: US (occurrence: US)
  Receive Date: 20181008
  Receipt Date: 20200206
  Transmission Date: 20200409
  Serious: No
  Sender: FDA-Public Use
  Company Number: US-PFIZER INC-2018400163

PATIENT
  Age: 58 Year
  Sex: Female
  Weight: 72 kg

DRUGS (7)
  1. LYRICA [Suspect]
     Active Substance: PREGABALIN
     Indication: NERVE INJURY
     Dosage: 75 MG (ONE TAB), 4X/DAY (Q 6 HRS DAILY)
  2. LYRICA [Suspect]
     Active Substance: PREGABALIN
     Indication: NEUROPATHY PERIPHERAL
     Dosage: 75 MG, 4X/DAY (EVERY 6 HOURS DAILY)
     Route: 048
  3. LYRICA [Suspect]
     Active Substance: PREGABALIN
     Dosage: 375 MG, DAILY, (TAKE 2 TABLETS IN THE MORNING THEN 1 TABLET  (EVERY) 6 HRS )
  4. LYRICA [Suspect]
     Active Substance: PREGABALIN
     Dosage: 375 MG, DAILY, (TAKE 2 TABLETS IN THE MORNING THEN 1 TABLET  (EVERY) 6 HRS )
  5. TRAMADOL. [Concomitant]
     Active Substance: TRAMADOL
     Indication: NEUROPATHY PERIPHERAL
     Dosage: 50 MG, 2X/DAY
     Dates: start: 2019
  6. LYRICA [Suspect]
     Active Substance: PREGABALIN
     Indication: PAIN
     Dosage: 150 MG, UNK
  7. LYRICA [Suspect]
     Active Substance: PREGABALIN
     Indication: NEURALGIA
     Dosage: 75 MG, 3X/DAY
     Route: 048
     Dates: start: 2018, end: 2019

REACTIONS (5)
  - Tremor [Unknown]
  - Decreased appetite [Unknown]
  - Malaise [Unknown]
  - Musculoskeletal stiffness [Unknown]
  - Loss of personal independence in daily activities [Unknown]
